FAERS Safety Report 9265810 (Version 1)
Quarter: 2013Q2

REPORT INFORMATION
  Report Type: Spontaneous
  Country: US (occurrence: US)
  Receive Date: 20130501
  Receipt Date: 20130501
  Transmission Date: 20140414
  Serious: Yes (Other)
  Sender: FDA-Public Use
  Company Number: US-GLAXOSMITHKLINE-A1022098A

PATIENT
  Age: 70 Year
  Sex: Male

DRUGS (2)
  1. FLOLAN [Suspect]
     Indication: COR PULMONALE CHRONIC
     Dosage: 25NGKM CONTINUOUS
     Route: 042
     Dates: start: 20100122
  2. REVATIO [Concomitant]

REACTIONS (1)
  - Bladder operation [Unknown]
